FAERS Safety Report 25902196 (Version 1)
Quarter: 2025Q4

REPORT INFORMATION
  Report Type: Spontaneous
  Country: US (occurrence: US)
  Receive Date: 20251009
  Receipt Date: 20251009
  Transmission Date: 20260118
  Serious: No
  Sender: DR REDDYS
  Company Number: None

PATIENT
  Age: 55 Year
  Sex: Female

DRUGS (1)
  1. FLUCONAZOLE [Suspect]
     Active Substance: FLUCONAZOLE
     Indication: Product used for unknown indication

REACTIONS (1)
  - Drug hypersensitivity [Unknown]
